FAERS Safety Report 8871044 (Version 1)
Quarter: 2012Q4

REPORT INFORMATION
  Report Type: Spontaneous
  Country: US (occurrence: None)
  Receive Date: 20121026
  Receipt Date: 20121026
  Transmission Date: 20130627
  Serious: Yes (Life-Threatening, Other)
  Sender: FDA-Public Use
  Company Number: None

PATIENT
  Age: 26 Year
  Sex: Female
  Weight: 77.11 kg

DRUGS (6)
  1. VIIBRYD [Suspect]
     Indication: DEPRESSION
     Dosage: 10-40 mg daily po
     Route: 048
     Dates: start: 20120507, end: 20120622
  2. VIIBRYD [Suspect]
     Indication: ANXIETY
     Dosage: 10-40 mg daily po
     Route: 048
     Dates: start: 20120507, end: 20120622
  3. NEURONTIN [Concomitant]
  4. ADDERALL XR [Concomitant]
  5. TRI-SPRINTEC [Concomitant]
  6. PROPRANOLOL [Concomitant]

REACTIONS (20)
  - Hallucination [None]
  - Respiratory paralysis [None]
  - Pollakiuria [None]
  - Convulsion [None]
  - Sleep paralysis [None]
  - Paraesthesia [None]
  - Muscle spasms [None]
  - Paraesthesia [None]
  - Withdrawal syndrome [None]
  - Headache [None]
  - Muscle tightness [None]
  - Nephrogenic diabetes insipidus [None]
  - Suicidal ideation [None]
  - Depression [None]
  - Insomnia [None]
  - Tinnitus [None]
  - Illusion [None]
  - Speech disorder [None]
  - Ecchymosis [None]
  - Vision blurred [None]
